FAERS Safety Report 9029187 (Version 1)
Quarter: 2013Q1

REPORT INFORMATION
  Report Type: Spontaneous
  Country: US (occurrence: US)
  Receive Date: 20130125
  Receipt Date: 20130125
  Transmission Date: 20140127
  Serious: Yes (Other)
  Sender: FDA-Public Use
  Company Number: US-JNJFOC-20130112162

PATIENT
  Sex: Female

DRUGS (4)
  1. EXTRA STRENGTH TYLENOL [Suspect]
     Indication: HEADACHE
     Route: 048
  2. UNSPECIFIED INGREDIENT [Concomitant]
     Indication: BLOOD CHOLESTEROL INCREASED
     Route: 065
  3. PRADAXA [Concomitant]
     Indication: PRODUCT USED FOR UNKNOWN INDICATION
     Route: 065
  4. MULTIPLE HEART MEDICATIONS [Concomitant]
     Indication: CARDIAC DISORDER
     Route: 065

REACTIONS (4)
  - Liver injury [Unknown]
  - Overdose [Unknown]
  - Somnolence [Unknown]
  - Lethargy [Unknown]
